FAERS Safety Report 11849356 (Version 1)
Quarter: 2015Q4

REPORT INFORMATION
  Report Type: Spontaneous
  Country: CA (occurrence: CA)
  Receive Date: 20151218
  Receipt Date: 20151218
  Transmission Date: 20160305
  Serious: Yes (Hospitalization)
  Sender: FDA-Public Use
  Company Number: CA-TEVA-618934ACC

PATIENT
  Age: 73 Year
  Sex: Female
  Weight: 69.92 kg

DRUGS (1)
  1. METFORMIN [Suspect]
     Active Substance: METFORMIN HYDROCHLORIDE
     Indication: DIABETES MELLITUS
     Dosage: 2490 MILLIGRAM DAILY;
     Route: 065

REACTIONS (3)
  - Blood lactic acid increased [Unknown]
  - Acute kidney injury [Unknown]
  - Fall [Unknown]
